FAERS Safety Report 9970603 (Version 1)
Quarter: 2014Q1

REPORT INFORMATION
  Report Type: Spontaneous
  Country: US (occurrence: None)
  Receive Date: 20140127
  Receipt Date: 20140127
  Transmission Date: 20141002
  Serious: Yes (Other)
  Sender: FDA-Public Use
  Company Number: 1283427

PATIENT
  Age: 72 Year
  Sex: Male

DRUGS (2)
  1. RITUXIMAB [Suspect]
     Indication: MANTLE CELL LYMPHOMA
  2. BENDAMUSTINE [Suspect]
     Indication: MANTLE CELL LYMPHOMA

REACTIONS (3)
  - Thrombocytopenia [None]
  - Haemoglobin decreased [None]
  - White blood cell count decreased [None]
